FAERS Safety Report 18312975 (Version 1)
Quarter: 2020Q3

REPORT INFORMATION
  Report Type: Spontaneous
  Country: US (occurrence: US)
  Receive Date: 20200925
  Receipt Date: 20200925
  Transmission Date: 20201103
  Serious: Yes (Death)
  Sender: FDA-Public Use
  Company Number: None

PATIENT
  Age: 73 Year
  Sex: Male

DRUGS (3)
  1. MYCOPHENOLATE [Suspect]
     Active Substance: MYCOPHENOLIC ACID
     Indication: NEOPLASM MALIGNANT
     Route: 048
     Dates: start: 20200827, end: 20200913
  2. LISINOPRIL, LORAZEPAM, PREDNISONE, SIMVASTATIN, METOPROLOL SUCCINATE [Concomitant]
  3. ESCITALOPRAM, HYDROMET [Concomitant]

REACTIONS (1)
  - Death [None]

NARRATIVE: CASE EVENT DATE: 20200913
